FAERS Safety Report 5682703-4 (Version None)
Quarter: 2008Q1

REPORT INFORMATION
  Report Type: 
  Country: None (occurrence: None)
  Receive Date: 20080326
  Receipt Date: 20080326
  Transmission Date: 20080703
  Serious: No
  Sender: FDA-Public Use
  Company Number: None

PATIENT
  Age: 53 Year
  Sex: Female
  Weight: 64 kg

DRUGS (8)
  1. ANASTROZOLE [Suspect]
     Indication: BREAST CANCER
     Dosage: 1 MG PO QD
     Route: 048
     Dates: start: 20071101
  2. VENLAFAXINE HCL [Concomitant]
  3. DEXAMETHASONE TAB [Concomitant]
  4. LORAZEPAM [Concomitant]
  5. ONDANSETRON [Concomitant]
  6. OXYBUTININ [Concomitant]
  7. HYDROMORPHONE HCL [Concomitant]
  8. DOCUSATE [Concomitant]

REACTIONS (5)
  - BREAST CANCER METASTATIC [None]
  - CONFUSIONAL STATE [None]
  - CONSTIPATION [None]
  - PROCTALGIA [None]
  - PULMONARY EMBOLISM [None]
